FAERS Safety Report 8208063-2 (Version None)
Quarter: 2012Q1

REPORT INFORMATION
  Report Type: 
  Country: None (occurrence: None)
  Receive Date: 20120314
  Receipt Date: 20120305
  Transmission Date: 20120608
  Serious: Yes (Hospitalization, Disabling, Congenital Anomaly, Other)
  Sender: FDA-Public Use
  Company Number: DE-ASTRAZENECA-2012SE15286

PATIENT
  Age: 0 Day
  Sex: Female
  Weight: 1.3 kg

DRUGS (7)
  1. ORTHOMOL NATAL [Concomitant]
     Indication: PROPHYLAXIS OF NEURAL TUBE DEFECT
     Dosage: 0.4 MG/D
     Route: 064
     Dates: end: 20110404
  2. INSIDON [Suspect]
     Indication: DEPRESSION
     Dosage: 100 MG/D TAKEN UNTIL GW 10
     Route: 064
  3. PRESINOL [Concomitant]
     Indication: PRE-ECLAMPSIA
     Route: 064
     Dates: end: 20110404
  4. SEROQUEL [Suspect]
     Indication: DEPRESSION
     Route: 064
     Dates: start: 20100825, end: 20110404
  5. CITALOPRAM [Concomitant]
     Indication: DEPRESSION
     Dosage: 40 MG/D TAKEN UNTIL GW 10
     Route: 064
  6. VALDOXAN [Suspect]
     Indication: DEPRESSION
     Dosage: 25 MG/D
     Route: 064
     Dates: start: 20090601, end: 20110404
  7. ACTRAPID [Concomitant]
     Indication: GESTATIONAL DIABETES
     Route: 064
     Dates: end: 20110404

REACTIONS (3)
  - PREMATURE BABY [None]
  - PIERRE ROBIN SYNDROME [None]
  - CLEFT PALATE [None]
